FAERS Safety Report 7576587-7 (Version None)
Quarter: 2011Q2

REPORT INFORMATION
  Report Type: 
  Country: None (occurrence: None)
  Receive Date: 20110628
  Receipt Date: 20080828
  Transmission Date: 20111010
  Serious: Yes (Other)
  Sender: FDA-Public Use
  Company Number: US-BAYER-201031086NA

PATIENT
  Age: 45 Year
  Sex: Female
  Weight: 75 kg

DRUGS (8)
  1. PRIMACOR [Concomitant]
     Dosage: UNK
     Dates: start: 20040524
  2. BENAZEPRIL HYDROCHLORIDE [Concomitant]
     Dosage: 40 MG, UNK
  3. COUMADIN [Concomitant]
     Dosage: 2.5 MG, QD
  4. FENTANYL [Concomitant]
     Dosage: 5 MG, UNK
     Dates: start: 20040524
  5. DOBUTAMINE HCL [Concomitant]
     Dosage: UNK
     Dates: start: 20040524
  6. ATENOLOL [Concomitant]
     Dosage: 25 MG, UNK
  7. LASIX [Concomitant]
     Dosage: 40 MG, QD
  8. TRASYLOL [Suspect]
     Indication: CORONARY ARTERY BYPASS
     Dosage: 100ML PUMP PRIME DOSE
     Dates: start: 20040524

REACTIONS (12)
  - MYOCARDIAL INFARCTION [None]
  - POST-TRAUMATIC STRESS DISORDER [None]
  - STRESS [None]
  - EMOTIONAL DISTRESS [None]
  - ANXIETY [None]
  - PAIN [None]
  - DEEP VEIN THROMBOSIS [None]
  - UNEVALUABLE EVENT [None]
  - FEAR [None]
  - ATRIAL FIBRILLATION [None]
  - RESPIRATORY FAILURE [None]
  - DEPRESSION [None]
